FAERS Safety Report 19663349 (Version 1)
Quarter: 2021Q3

REPORT INFORMATION
  Report Type: Spontaneous
  Country: US (occurrence: US)
  Receive Date: 20210805
  Receipt Date: 20210805
  Transmission Date: 20211014
  Serious: No
  Sender: FDA-Public Use
  Company Number: US-SK LIFE SCIENCE, INC-SKPVG-2020-000023

PATIENT

DRUGS (1)
  1. XCOPRI [Suspect]
     Active Substance: CENOBAMATE
     Indication: PRODUCT USED FOR UNKNOWN INDICATION
     Dosage: UNK
     Route: 065

REACTIONS (10)
  - Face injury [Unknown]
  - Seizure [Unknown]
  - Arthralgia [Unknown]
  - Pain in extremity [Unknown]
  - Lip injury [Unknown]
  - Petit mal epilepsy [Unknown]
  - Hand fracture [Unknown]
  - Generalised tonic-clonic seizure [Unknown]
  - Back pain [Unknown]
  - Insomnia [Unknown]

NARRATIVE: CASE EVENT DATE: 20200616
